FAERS Safety Report 9163408 (Version 2)
Quarter: 2013Q1

REPORT INFORMATION
  Report Type: Spontaneous
  Country: CA (occurrence: CA)
  Receive Date: 20130314
  Receipt Date: 20130328
  Transmission Date: 20140127
  Serious: Yes (Hospitalization, Other)
  Sender: FDA-Public Use
  Company Number: CA-AMGEN-CANSP2013014892

PATIENT
  Age: 76 Year
  Sex: Female
  Weight: 56.36 kg

DRUGS (1)
  1. PROLIA [Suspect]
     Indication: OSTEOPOROSIS
     Dosage: 60 MG, Q6MO
     Route: 058
     Dates: start: 20110725

REACTIONS (3)
  - Colon adenoma [Unknown]
  - Caecitis [Unknown]
  - Diverticulum [Unknown]
